FAERS Safety Report 6855160-X (Version None)
Quarter: 2010Q3

REPORT INFORMATION
  Report Type: 
  Country: None (occurrence: None)
  Receive Date: 20100717
  Receipt Date: 20091209
  Transmission Date: 20110219
  Serious: Yes (Other)
  Sender: FDA-Public Use
  Company Number: US-PFIZER INC-2007096629

PATIENT
  Sex: Male
  Weight: 81.633 kg

DRUGS (10)
  1. CHANTIX [Suspect]
     Indication: SMOKING CESSATION THERAPY
     Dosage: UNK
     Dates: start: 20060101
  2. CHANTIX [Suspect]
     Dosage: 0.5 MG, 1X/DAY
     Dates: start: 20060101
  3. CYMBALTA [Concomitant]
     Indication: NERVE INJURY
     Dosage: 30 MG, 3X/DAY
     Route: 048
  4. LIBRIUM [Concomitant]
     Indication: DYSPNOEA
     Dosage: 25 MG, UNK
     Route: 048
  5. NABUMETONE [Concomitant]
  6. ZETIA [Concomitant]
     Indication: BLOOD CHOLESTEROL INCREASED
  7. SIMVASTATIN [Concomitant]
     Indication: BLOOD CHOLESTEROL INCREASED
     Dosage: UNK
  8. PRILOSEC [Concomitant]
     Indication: ULCER
     Dosage: 20 MG, 1X/DAY
     Route: 048
  9. ZOCOR [Concomitant]
     Indication: BLOOD CHOLESTEROL INCREASED
     Route: 048
  10. OXYCODONE [Concomitant]
     Indication: NERVE INJURY
     Dosage: UNK
     Route: 048

REACTIONS (7)
  - ANGER [None]
  - ANXIETY [None]
  - DECREASED APPETITE [None]
  - DRUG INEFFECTIVE [None]
  - FEELING COLD [None]
  - NERVOUSNESS [None]
  - SUICIDAL IDEATION [None]
